FAERS Safety Report 7447900-6 (Version None)
Quarter: 2011Q2

REPORT INFORMATION
  Report Type: 
  Country: None (occurrence: None)
  Receive Date: 20110429
  Receipt Date: 20100324
  Transmission Date: 20111010
  Serious: No
  Sender: FDA-Public Use
  Company Number: US-ASTRAZENECA-2007UW06336

PATIENT
  Age: 62 Year
  Sex: Female
  Weight: 61.2 kg

DRUGS (6)
  1. NEXIUM [Suspect]
     Route: 048
     Dates: start: 20060322
  2. XANAX [Concomitant]
  3. NEXIUM [Suspect]
     Route: 048
     Dates: start: 20060322
  4. TOPROL-XL [Suspect]
     Route: 048
  5. NEXIUM [Suspect]
     Indication: GASTRITIS
     Route: 048
  6. NEXIUM [Suspect]
     Indication: ABDOMINAL DISTENSION
     Route: 048

REACTIONS (5)
  - DIARRHOEA [None]
  - PAIN [None]
  - ABDOMINAL DISTENSION [None]
  - GALLBLADDER DISORDER [None]
  - ABDOMINAL DISCOMFORT [None]
